FAERS Safety Report 4690858-3 (Version None)
Quarter: 2005Q2

REPORT INFORMATION
  Report Type: 
  Country: None (occurrence: None)
  Receive Date: 20050614
  Receipt Date: 20050614
  Transmission Date: 20051028
  Serious: No
  Sender: FDA-Public Use
  Company Number: None

PATIENT
  Age: 52 Year
  Sex: Female
  Weight: 92.9874 kg

DRUGS (6)
  1. AVASTIN [Suspect]
     Indication: COLON CANCER
     Dosage: 5MG/KG = 440MG Q 2 WKS
     Dates: start: 20050214
  2. AVASTIN [Suspect]
     Indication: COLON CANCER
     Dosage: 5MG/KG = 440MG Q 2 WKS
     Dates: start: 20050228
  3. AVASTIN [Suspect]
     Indication: COLON CANCER
     Dosage: 5MG/KG = 440MG Q 2 WKS
     Dates: start: 20050314
  4. AVASTIN [Suspect]
     Indication: COLON CANCER
     Dosage: 5MG/KG = 440MG Q 2 WKS
     Dates: start: 20050328
  5. AVASTIN [Suspect]
     Indication: COLON CANCER
     Dosage: 5MG/KG = 440MG Q 2 WKS
     Dates: start: 20050411
  6. . [Concomitant]

REACTIONS (1)
  - NEPHROTIC SYNDROME [None]
